FAERS Safety Report 15854499 (Version 2)
Quarter: 2019Q1

REPORT INFORMATION
  Report Type: Report from Study
  Country: KR (occurrence: KR)
  Receive Date: 20190122
  Receipt Date: 20190129
  Transmission Date: 20190417
  Serious: Yes (Death, Life-Threatening, Other)
  Sender: FDA-Public Use
  Company Number: KR-PFIZER INC-2019023865

PATIENT

DRUGS (3)
  1. PACLITAXEL. [Suspect]
     Active Substance: PACLITAXEL
     Indication: GASTRIC CANCER
     Dosage: 135 MG/M2, EVERY 3 WEEKS (ON DAY 1, IN 500 ML OF DEXTROSE 5% AS A 3-HOUR INFUSION)
     Route: 042
  2. EPTAPLATIN [Suspect]
     Active Substance: EPTAPLATIN
     Indication: GASTRIC CANCER
     Dosage: 400 MG/M2, EVERY 3 WEEKS (DAY 2, 500 ML OF NORMAL SALINE AS A 3-HOUR INFUSION)
     Route: 042
  3. FLUOROURACIL. [Suspect]
     Active Substance: FLUOROURACIL
     Indication: GASTRIC CANCER
     Dosage: 800 MG/M2, EVERY 3 WEEKS, IN 1000 ML OF DEXTROSE 5% AS 24 HOUR CONTINUOUS INFUSION, DAY 2-4

REACTIONS (3)
  - Sepsis [Fatal]
  - Pneumonia [Fatal]
  - Neutropenia [Unknown]
